FAERS Safety Report 9918998 (Version 1)
Quarter: 2014Q1

REPORT INFORMATION
  Report Type: Spontaneous
  Country: US (occurrence: US)
  Receive Date: 20140224
  Receipt Date: 20140224
  Transmission Date: 20141002
  Serious: No
  Sender: FDA-Public Use
  Company Number: US-BRISTOL-MYERS SQUIBB COMPANY-17414111

PATIENT
  Age: 78 Year
  Sex: Female

DRUGS (12)
  1. METFORMIN HCL [Suspect]
  2. JANUVIA [Concomitant]
     Dosage: TABS
  3. TRIMETHOPRIM [Concomitant]
     Dosage: TABS?QHS
     Route: 048
  4. LIPITOR [Concomitant]
     Route: 048
  5. NIASPAN [Concomitant]
     Dosage: TABS?EXTENDED RELASE 1 EVERY DAY AT BEDTIME
  6. COZAAR [Concomitant]
     Dosage: TABS
  7. HYDROCHLOROTHIAZIDE [Concomitant]
     Dosage: TABS
  8. SPIRONOLACTONE [Concomitant]
     Dosage: TABS,2 EVERY MORNING
  9. TENORMIN [Concomitant]
  10. ASPIRIN [Concomitant]
     Dosage: CHEWABLE TABS
  11. LACTULOSE [Concomitant]
     Dosage: 10GM/15ML ORAL SOLUTION 3CC TID
     Route: 048
  12. CENTRUM SILVER [Concomitant]
     Dosage: CENTRUM SILVER MULTIVITAMIN

REACTIONS (1)
  - Diarrhoea [Unknown]
